FAERS Safety Report 10009030 (Version 2)
Quarter: 2014Q1

REPORT INFORMATION
  Report Type: Spontaneous
  Country: US (occurrence: US)
  Receive Date: 20140313
  Receipt Date: 20140313
  Transmission Date: 20141002
  Serious: No
  Sender: FDA-Public Use
  Company Number: US-INCYTE CORPORATION-2012IN000853

PATIENT
  Age: 75 Year
  Sex: Female
  Weight: 79.37 kg

DRUGS (6)
  1. JAKAFI [Suspect]
     Indication: MYELOFIBROSIS
     Dosage: 20 MG, BID
     Route: 048
     Dates: start: 20120326, end: 2012
  2. JAKAFI [Suspect]
     Indication: POLYCYTHAEMIA VERA
     Dosage: 20 MG, BID QOD
     Route: 048
     Dates: start: 2012
  3. DILTIAZEM [Concomitant]
  4. HYDROCHLOROTHIAZIDE [Concomitant]
  5. ASPIRIN [Concomitant]
     Dosage: 81 MG, UNK
  6. FLAXSEED OIL [Concomitant]

REACTIONS (5)
  - Alopecia [Not Recovered/Not Resolved]
  - Dizziness [Not Recovered/Not Resolved]
  - Asthenia [Recovered/Resolved]
  - Pain [Recovered/Resolved]
  - Platelet count decreased [Recovered/Resolved]
